FAERS Safety Report 5524249-X (Version None)
Quarter: 2007Q4

REPORT INFORMATION
  Report Type: 
  Country: None (occurrence: None)
  Receive Date: 20071121
  Receipt Date: 20071109
  Transmission Date: 20080405
  Serious: Yes (Other)
  Sender: FDA-Public Use
  Company Number: US-PFIZER INC-2007095048

PATIENT
  Sex: Female
  Weight: 75 kg

DRUGS (3)
  1. DILANTIN [Suspect]
     Indication: CONVULSION
  2. ALL OTHER THERAPEUTIC PRODUCTS [Suspect]
  3. PHENOBARBITAL TAB [Concomitant]

REACTIONS (7)
  - ASTHENIA [None]
  - FALL [None]
  - FOOT FRACTURE [None]
  - GAIT DISTURBANCE [None]
  - MALAISE [None]
  - SPEECH DISORDER [None]
  - UNEVALUABLE EVENT [None]
